FAERS Safety Report 5776905-6 (Version None)
Quarter: 2008Q2

REPORT INFORMATION
  Report Type: 
  Country: None (occurrence: None)
  Receive Date: 20080618
  Receipt Date: 20080612
  Transmission Date: 20081010
  Serious: Yes (Hospitalization)
  Sender: FDA-Public Use
  Company Number: A0733676A

PATIENT
  Sex: Female

DRUGS (8)
  1. AVANDIA [Suspect]
     Dosage: 8MG PER DAY
     Route: 048
  2. RESTORIL [Concomitant]
  3. COMBIVENT [Concomitant]
  4. ATUSS MS [Concomitant]
  5. GLUCOPHAGE [Concomitant]
  6. LORCET-HD [Concomitant]
  7. PAXIL CR [Concomitant]
  8. LORAZEPAM [Concomitant]

REACTIONS (4)
  - ARTERIOSCLEROSIS [None]
  - ATRIAL FIBRILLATION [None]
  - CARDIAC FAILURE CONGESTIVE [None]
  - CORONARY ARTERY DISEASE [None]
